FAERS Safety Report 17906875 (Version 1)
Quarter: 2020Q2

REPORT INFORMATION
  Report Type: Spontaneous
  Country: US (occurrence: US)
  Receive Date: 20200617
  Receipt Date: 20200617
  Transmission Date: 20200714
  Serious: No
  Sender: FDA-Public Use
  Company Number: US-PFIZER INC-2020230857

PATIENT
  Age: 58 Year
  Sex: Male
  Weight: 72.57 kg

DRUGS (1)
  1. NICOTROL [Suspect]
     Active Substance: NICOTINE
     Indication: SMOKING CESSATION THERAPY
     Dosage: ^4 CARDS WITH 7 SLOTS SO 28^
     Dates: start: 20200607

REACTIONS (1)
  - Haematospermia [Unknown]

NARRATIVE: CASE EVENT DATE: 20200611
